FAERS Safety Report 5851880-4 (Version None)
Quarter: 2008Q3

REPORT INFORMATION
  Report Type: 
  Country: None (occurrence: None)
  Receive Date: 20080819
  Receipt Date: 20080804
  Transmission Date: 20090109
  Serious: Yes (Hospitalization)
  Sender: FDA-Public Use
  Company Number: GXKR2008AU07362

PATIENT
  Age: 33 Year
  Sex: Female

DRUGS (4)
  1. CITALOPRAM HYDROBROMIDE [Suspect]
     Indication: DEPRESSION
     Dosage: 20 MG QD
  2. INTERFERON ALFA [Suspect]
     Indication: HEPATITIS C
  3. QUETIAPINE FUMARATE [Concomitant]
  4. RIBAVIRIN [Concomitant]

REACTIONS (8)
  - AGITATION [None]
  - ANXIETY [None]
  - DRUG INTERACTION [None]
  - FLIGHT OF IDEAS [None]
  - INSOMNIA [None]
  - MANIA [None]
  - MOOD ALTERED [None]
  - SPEECH DISORDER [None]
